FAERS Safety Report 21194482 (Version 3)
Quarter: 2023Q1

REPORT INFORMATION
  Report Type: Spontaneous
  Country: US (occurrence: None)
  Receive Date: 20220810
  Receipt Date: 20230206
  Transmission Date: 20230418
  Serious: Yes (Other)
  Sender: FDA-Public Use
  Company Number: US-ROCHE-3157603

PATIENT
  Sex: Female

DRUGS (2)
  1. OCREVUS [Suspect]
     Active Substance: OCRELIZUMAB
     Indication: Multiple sclerosis
     Dosage: STRENGTH 300MG/10ML,
     Route: 042
     Dates: start: 20220803
  2. OCREVUS [Suspect]
     Active Substance: OCRELIZUMAB
     Dosage: STRENGTH 300MG/10ML,
     Route: 042
     Dates: start: 202104

REACTIONS (1)
  - Multiple sclerosis relapse [Unknown]
